FAERS Safety Report 8641832 (Version 4)
Quarter: 2012Q4

REPORT INFORMATION
  Report Type: Report from Study
  Country: CA (occurrence: CA)
  Receive Date: 20120628
  Receipt Date: 20121212
  Transmission Date: 20130627
  Serious: Yes (Hospitalization)
  Sender: FDA-Public Use
  Company Number: CA-TEVA-345133USA

PATIENT
  Age: 62 Year
  Sex: Female

DRUGS (8)
  1. HYDROCHLOROTHIAZIDE [Suspect]
     Dates: start: 20090715
  2. DACLATASVIR [Suspect]
     Indication: HEPATITIS C
     Dosage: 60 Milligram Daily;
     Route: 048
     Dates: start: 20120523
  3. PEGINTERFERON ALFA-2A [Suspect]
     Indication: HEPATITIS C
     Dosage: 25.7143 Microgram Daily;
     Route: 058
     Dates: start: 20120523
  4. RIBAVIRIN [Suspect]
     Dosage: 1000 Milligram Daily;
     Route: 048
     Dates: start: 20120523
  5. IRBESARTAN [Suspect]
     Dates: start: 20090715
  6. POTASSIUM [Concomitant]
     Route: 048
  7. POTASSIUM [Concomitant]
     Route: 042
  8. IBUPROFEN [Concomitant]
     Dates: start: 20120524

REACTIONS (3)
  - Hypokalaemia [Recovered/Resolved]
  - Syncope [Recovered/Resolved]
  - Concussion [Recovered/Resolved]
